FAERS Safety Report 5420229-3 (Version None)
Quarter: 2007Q3

REPORT INFORMATION
  Report Type: 
  Country: None (occurrence: None)
  Receive Date: 20070815
  Receipt Date: 20070801
  Transmission Date: 20080115
  Serious: Yes (Other)
  Sender: FDA-Public Use
  Company Number: 02100-EUR-07-0081

PATIENT
  Age: 82 Year
  Sex: Male

DRUGS (2)
  1. CILOSTAZOL [Suspect]
     Indication: PERIPHERAL ARTERIAL OCCLUSIVE DISEASE
     Dosage: 100 MG ORAL
     Route: 048
     Dates: start: 20070314, end: 20070514
  2. ASPIRIN [Concomitant]

REACTIONS (2)
  - MUSCLE HAEMORRHAGE [None]
  - SPONTANEOUS HAEMATOMA [None]
